FAERS Safety Report 25892197 (Version 1)
Quarter: 2025Q4

REPORT INFORMATION
  Report Type: Spontaneous
  Country: EU (occurrence: EU)
  Receive Date: 20251007
  Receipt Date: 20251007
  Transmission Date: 20260118
  Serious: Yes (Other)
  Sender: NOVARTIS
  Company Number: None

PATIENT
  Age: 52 Year
  Sex: Male

DRUGS (1)
  1. TRILEPTAL [Suspect]
     Active Substance: OXCARBAZEPINE
     Indication: Dissociative identity disorder
     Dosage: 600 MG, VARIABLE SEGUN FECHAS
     Route: 048
     Dates: start: 20250720

REACTIONS (7)
  - Hyponatraemia [Recovered/Resolved]
  - Syncope [Recovered/Resolved]
  - Irritability [Recovered/Resolved]
  - Self-injurious ideation [Recovered/Resolved]
  - Headache [Recovered/Resolved]
  - Anxiety [Recovered/Resolved]
  - Disorientation [Recovered/Resolved]

NARRATIVE: CASE EVENT DATE: 20250720
